FAERS Safety Report 6083184-1 (Version None)
Quarter: 2009Q1

REPORT INFORMATION
  Report Type: 
  Country: None (occurrence: None)
  Receive Date: 20090213
  Receipt Date: 20090213
  Transmission Date: 20090719
  Serious: No
  Sender: FDA-Public Use
  Company Number: None

PATIENT
  Age: 56 Year
  Sex: Female
  Weight: 54.4316 kg

DRUGS (1)
  1. NEOMYCIN [Suspect]
     Indication: EAR INFECTION
     Dosage: 4 DROPS 3 TIMES DAY 10 DAYS
     Dates: start: 20081214, end: 20081222

REACTIONS (1)
  - DEAFNESS UNILATERAL [None]
